FAERS Safety Report 6672199-8 (Version None)
Quarter: 2010Q2

REPORT INFORMATION
  Report Type: 
  Country: None (occurrence: None)
  Receive Date: 20100408
  Receipt Date: 20100329
  Transmission Date: 20101027
  Serious: Yes (Congenital Anomaly)
  Sender: FDA-Public Use
  Company Number: US-BIOGENIDEC-2010BI011060

PATIENT

DRUGS (1)
  1. AVONEX [Suspect]
     Indication: MULTIPLE SCLEROSIS
     Route: 064
     Dates: start: 20071125, end: 20100115

REACTIONS (3)
  - HEART DISEASE CONGENITAL [None]
  - LIMB MALFORMATION [None]
  - TRISOMY 21 [None]
